FAERS Safety Report 8461145-2 (Version None)
Quarter: 2012Q2

REPORT INFORMATION
  Report Type: 
  Country: None (occurrence: None)
  Receive Date: 20120625
  Receipt Date: 20120622
  Transmission Date: 20120825
  Serious: No
  Sender: FDA-Public Use
  Company Number: US-PFIZER INC-2012151023

PATIENT
  Sex: Female

DRUGS (1)
  1. CHANTIX [Suspect]
     Indication: SMOKING CESSATION THERAPY
     Dosage: UNK
     Dates: start: 20120101, end: 20120101

REACTIONS (4)
  - NAUSEA [None]
  - WEIGHT INCREASED [None]
  - DRUG INEFFECTIVE [None]
  - DRUG INTOLERANCE [None]
